FAERS Safety Report 7647741-0 (Version None)
Quarter: 2011Q3

REPORT INFORMATION
  Report Type: 
  Country: None (occurrence: None)
  Receive Date: 20110801
  Receipt Date: 20110801
  Transmission Date: 20111222
  Serious: No
  Sender: FDA-Public Use
  Company Number: None

PATIENT
  Age: 50 Year
  Sex: Male

DRUGS (12)
  1. TENOFOVIR DISOPROXIL FUMARATE [Suspect]
     Indication: HIV INFECTION
     Dosage: 300 MG
     Route: 048
     Dates: start: 20110126, end: 20110201
  2. ATOVAQUONE [Concomitant]
     Route: 048
  3. DOCUSATE [Concomitant]
     Route: 048
  4. ASPIRIN [Concomitant]
     Route: 048
  5. ZINC SULFATE [Concomitant]
     Route: 048
  6. FAMOTIDINE [Concomitant]
     Route: 048
  7. MEGESTROL ACETATE [Concomitant]
     Route: 048
  8. LOSARTAN POTASSIUM [Concomitant]
     Route: 048
  9. EMTRICITABINE [Concomitant]
     Indication: HIV INFECTION
     Dosage: 200 MG
     Route: 048
     Dates: start: 20110126, end: 20110201
  10. MIRTAZAPINE [Concomitant]
     Route: 048
  11. AZITHROMYCIN [Concomitant]
     Route: 048
  12. HEPARIN [Concomitant]
     Route: 058

REACTIONS (1)
  - ACUTE PRERENAL FAILURE [None]
